FAERS Safety Report 16745698 (Version 1)
Quarter: 2019Q3

REPORT INFORMATION
  Report Type: Spontaneous
  Country: FR (occurrence: FR)
  Receive Date: 20190827
  Receipt Date: 20190827
  Transmission Date: 20191005
  Serious: Yes (Other)
  Sender: FDA-Public Use
  Company Number: FR-BAUSCH-BL-2019-024025

PATIENT
  Age: 27 Year
  Sex: Male
  Weight: 67 kg

DRUGS (1)
  1. CYCLOPENTOLATE. [Suspect]
     Active Substance: CYCLOPENTOLATE
     Indication: FUNDOSCOPY
     Dosage: 1 DROP IN EACH EYE 45 MINUTES BEFORE THE EXAMINATION AT THE OPHTHALMOLOGIST, THEN 40 MINUTES BEFORE
     Route: 047
     Dates: start: 20190723, end: 20190723

REACTIONS (5)
  - Balance disorder [Recovered/Resolved]
  - Nausea [Recovered/Resolved]
  - Photophobia [Recovered/Resolved]
  - Visual impairment [Recovered/Resolved]
  - Headache [Recovered/Resolved]

NARRATIVE: CASE EVENT DATE: 20190723
